FAERS Safety Report 8639245 (Version 2)
Quarter: 2014Q1

REPORT INFORMATION
  Report Type: Spontaneous
  Country: US (occurrence: None)
  Receive Date: 20120323
  Receipt Date: 20130305
  Transmission Date: 20141002
  Serious: Yes (Other)
  Sender: FDA-Public Use
  Company Number: 163-21880-11092117

PATIENT
  Age: 75 Year
  Sex: Female
  Weight: 107.5 kg

DRUGS (29)
  1. REVLIMID [Suspect]
     Indication: MYELODYSPLASTIC SYNDROME
     Dosage: 5 MG, 1 IN 1 D, PO ; 10 MG, 1 IN 1 D, PO
     Route: 048
     Dates: start: 20110531, end: 20110829
  2. PROCRIT [Concomitant]
  3. LOW DOSE ASPIRIN (ACETYLSALICYLIC ACID) [Concomitant]
  4. CELEBREX (CELECOXIB) [Concomitant]
  5. METFORMIN (METFORMIN) [Concomitant]
  6. GLIPIZIDE (GLIPIZIDE) [Concomitant]
  7. JANUVIA (SITAGLIPTIN PHOSPHATE) [Concomitant]
  8. LOVENOX (HEPARIN-FRACTION, SODIUM SALT) [Concomitant]
  9. STEROIDS (CORTICOSTEROIDS) [Concomitant]
  10. ANTIBIOTICS (ANTIBIOTICS) [Concomitant]
  11. PLATELET PACK (DIPYRIDAMOLE) [Concomitant]
  12. BLOOD (BLOOD AND RELATED PRODUCTS) [Concomitant]
  13. INSULIN (INSULIN) [Concomitant]
  14. PREDNISONE (PREDNISONE) [Concomitant]
  15. AMLODIPINE (AMLODIPINE) [Concomitant]
  16. LIPITOR (ATORVASTATIN) [Concomitant]
  17. CHOLESTYRAMINE (COLESTYRAMINE) [Concomitant]
  18. PHENERGAN WITH CODEINE (PHENERGAN WITH CODEINE) [Concomitant]
  19. GLYBURIDE (GLIBENCLAMIDE) [Concomitant]
  20. HYDROCHOLOROTHIAZIDE (HYDROCHLOROTHIAZIDE) [Concomitant]
  21. CLARITIN-D (NARINE REPETABS) [Concomitant]
  22. LORAZEPAM (LORAZEPAM) [Concomitant]
  23. MAGNESIUM (MAGNESIUM) [Concomitant]
  24. METOPROLOL (METOPROLOL) [Concomitant]
  25. FOLTX (TRIOBE) [Concomitant]
  26. OMEPRAZOLE (OMEPRAZOLE) [Concomitant]
  27. ACTOS (PIOGLITAZONE) [Concomitant]
  28. PROCHLORPERAZINE (PROCHLORPERAZINE) [Concomitant]
  29. EPOETIN (EPOETIN ALFA) [Concomitant]

REACTIONS (5)
  - Platelet count decreased [None]
  - Myelodysplastic syndrome [None]
  - Disease progression [None]
  - Deep vein thrombosis [None]
  - Pulmonary embolism [None]
